FAERS Safety Report 4399554-3 (Version None)
Quarter: 2004Q3

REPORT INFORMATION
  Report Type: 
  Country: None (occurrence: None)
  Receive Date: 20040716
  Receipt Date: 20040705
  Transmission Date: 20050211
  Serious: Yes (Other)
  Sender: FDA-Public Use
  Company Number: JP-GLAXOSMITHKLINE-B0338381A

PATIENT
  Age: 50 Year
  Sex: Female

DRUGS (1)
  1. VALTREX [Suspect]
     Dosage: 500MG THREE TIMES PER DAY
     Route: 048
     Dates: start: 20040628, end: 20040701

REACTIONS (4)
  - DIZZINESS [None]
  - HALLUCINATION [None]
  - LACRIMATION INCREASED [None]
  - SPEECH DISORDER [None]
